FAERS Safety Report 10724795 (Version 2)
Quarter: 2015Q1

REPORT INFORMATION
  Report Type: Spontaneous
  Country: US (occurrence: US)
  Receive Date: 20150120
  Receipt Date: 20150204
  Transmission Date: 20150721
  Serious: Yes (Disabling)
  Sender: FDA-Public Use
  Company Number: US-MERCK-1201USA03323

PATIENT
  Sex: Male

DRUGS (2)
  1. PROPECIA [Suspect]
     Active Substance: FINASTERIDE
     Indication: ALOPECIA
     Dosage: 1 MG, UNK
     Route: 048
     Dates: end: 20121207
  2. FINASTERIDE. [Suspect]
     Active Substance: FINASTERIDE
     Dosage: 1 MG, UNK
     Route: 048
     Dates: start: 20130118, end: 20141217

REACTIONS (15)
  - Anxiety [Not Recovered/Not Resolved]
  - Narcolepsy [Unknown]
  - Borderline glaucoma [Unknown]
  - Polyp [Unknown]
  - Haemorrhoids [Unknown]
  - Male orgasmic disorder [Unknown]
  - Nausea [Unknown]
  - Cognitive disorder [Not Recovered/Not Resolved]
  - Haematochezia [Unknown]
  - Cataplexy [Unknown]
  - Libido decreased [Not Recovered/Not Resolved]
  - Synovitis [Unknown]
  - Heart sounds abnormal [Unknown]
  - Hypertension [Unknown]
  - Sexual dysfunction [Not Recovered/Not Resolved]

NARRATIVE: CASE EVENT DATE: 1999
